FAERS Safety Report 7423947-0 (Version None)
Quarter: 2011Q2

REPORT INFORMATION
  Report Type: 
  Country: None (occurrence: None)
  Receive Date: 20110419
  Receipt Date: 20110411
  Transmission Date: 20111010
  Serious: Yes (Other)
  Sender: FDA-Public Use
  Company Number: A0922446A

PATIENT
  Age: 55 Year
  Sex: Male

DRUGS (1)
  1. ADVAIR HFA [Suspect]
     Indication: ASTHMA
     Dosage: 1PUFF TWICE PER DAY
     Route: 055
     Dates: start: 20040101

REACTIONS (4)
  - ASTHMA [None]
  - DEVICE MALFUNCTION [None]
  - CONDITION AGGRAVATED [None]
  - PRODUCT QUALITY ISSUE [None]
